FAERS Safety Report 11821602 (Version 1)
Quarter: 2015Q4

REPORT INFORMATION
  Report Type: Spontaneous
  Country: US (occurrence: US)
  Receive Date: 20151210
  Receipt Date: 20151210
  Transmission Date: 20160305
  Serious: No
  Sender: FDA-Public Use
  Company Number: US-BAYER-2015-485430

PATIENT
  Age: 63 Year
  Sex: Female
  Weight: 95.24 kg

DRUGS (2)
  1. METFORMIN [Concomitant]
     Active Substance: METFORMIN HYDROCHLORIDE
  2. ALEVE [Suspect]
     Active Substance: NAPROXEN SODIUM
     Indication: ARTHRITIS
     Dosage: 2 DF, QD
     Route: 048
     Dates: start: 2014

REACTIONS (3)
  - Drug ineffective [None]
  - Product physical issue [None]
  - Product use issue [None]

NARRATIVE: CASE EVENT DATE: 2014
